FAERS Safety Report 15330786 (Version 1)
Quarter: 2018Q3

REPORT INFORMATION
  Report Type: Spontaneous
  Country: CA (occurrence: CA)
  Receive Date: 20180829
  Receipt Date: 20180829
  Transmission Date: 20181010
  Serious: Yes (Other)
  Sender: FDA-Public Use
  Company Number: CA-PFIZER INC-2018341557

PATIENT
  Sex: Male

DRUGS (1)
  1. CHAMPIX [Suspect]
     Active Substance: VARENICLINE TARTRATE
     Indication: SMOKING CESSATION THERAPY
     Dosage: UNK
     Dates: end: 2018

REACTIONS (4)
  - Agitation [Unknown]
  - Anxiety [Unknown]
  - Intentional self-injury [Unknown]
  - Anger [Unknown]

NARRATIVE: CASE EVENT DATE: 201808
